FAERS Safety Report 21349484 (Version 1)
Quarter: 2022Q3

REPORT INFORMATION
  Report Type: Spontaneous
  Country: FR (occurrence: FR)
  Receive Date: 20220919
  Receipt Date: 20220919
  Transmission Date: 20221027
  Serious: Yes (Other)
  Sender: FDA-Public Use
  Company Number: FR-MYLANLABS-2022M1093558

PATIENT
  Age: 14 Year
  Sex: Male

DRUGS (3)
  1. ARIPIPRAZOLE [Suspect]
     Active Substance: ARIPIPRAZOLE
     Indication: Product used for unknown indication
     Dosage: 5 MILLIGRAM, QD
     Route: 065
     Dates: start: 20220910
  2. VALPROATE SODIUM [Concomitant]
     Active Substance: VALPROATE SODIUM
     Indication: Epilepsy
     Dosage: UNK
     Route: 065
  3. SOMATROPIN [Concomitant]
     Active Substance: SOMATROPIN
     Dosage: UNK
     Route: 065

REACTIONS (7)
  - Abdominal pain [Unknown]
  - Nausea [Unknown]
  - Discomfort [Unknown]
  - Vomiting [Unknown]
  - Pyrexia [Unknown]
  - Tremor [Unknown]
  - Therapy cessation [Unknown]

NARRATIVE: CASE EVENT DATE: 20220910
